FAERS Safety Report 11684811 (Version 3)
Quarter: 2016Q1

REPORT INFORMATION
  Report Type: Spontaneous
  Country: AT (occurrence: AT)
  Receive Date: 20151029
  Receipt Date: 20160119
  Transmission Date: 20160525
  Serious: Yes (Death, Hospitalization, Other)
  Sender: FDA-Public Use
  Company Number: AT-ALEXION PHARMACEUTICALS INC-A201504208

PATIENT
  Sex: Female
  Weight: 69 kg

DRUGS (1)
  1. SOLIRIS [Suspect]
     Active Substance: ECULIZUMAB
     Indication: HAEMOLYTIC URAEMIC SYNDROME
     Dosage: 900 MG, QW
     Route: 042
     Dates: start: 20150722, end: 20150819

REACTIONS (6)
  - Seizure [Unknown]
  - Metabolic encephalopathy [Unknown]
  - Status epilepticus [Unknown]
  - Drug ineffective [Unknown]
  - Cerebral disorder [Unknown]
  - Death [Fatal]
